FAERS Safety Report 5727905-3 (Version None)
Quarter: 2008Q2

REPORT INFORMATION
  Report Type: 
  Country: None (occurrence: None)
  Receive Date: 20080430
  Receipt Date: 20080415
  Transmission Date: 20081010
  Serious: Yes (Other)
  Sender: FDA-Public Use
  Company Number: SPV1-2008-00824

PATIENT
  Age: 44 Year
  Sex: Female
  Weight: 84.4 kg

DRUGS (4)
  1. CARBATROL [Suspect]
     Indication: LOSS OF CONTROL OF LEGS
     Dosage: 200 MG, 1X/DAY:QD
     Dates: start: 20060901, end: 20080220
  2. REBIF [Suspect]
     Indication: MULTIPLE SCLEROSIS
     Dosage: 44 UG, 3X/WEEK, SUBCUTANEOUS
     Route: 058
     Dates: start: 20060913, end: 20080227
  3. ADVIL [Concomitant]
  4. GABAPENTIN [Concomitant]

REACTIONS (6)
  - HEPATOTOXICITY [None]
  - INSOMNIA [None]
  - NAUSEA [None]
  - OFF LABEL USE [None]
  - OPTIC NEURITIS [None]
  - VOMITING [None]
